FAERS Safety Report 19454934 (Version 8)
Quarter: 2023Q1

REPORT INFORMATION
  Report Type: Report from Study
  Country: CO (occurrence: CO)
  Receive Date: 20210623
  Receipt Date: 20230124
  Transmission Date: 20230418
  Serious: Yes (Other)
  Sender: FDA-Public Use
  Company Number: CO-NOVARTISPH-NVSC2020CO281404

PATIENT
  Age: 69 Year
  Sex: Male
  Weight: 78 kg

DRUGS (6)
  1. RUXOLITINIB [Suspect]
     Active Substance: RUXOLITINIB
     Indication: Myelofibrosis
     Dosage: 20 MG, BID (EVERY 12 HOURS)
     Route: 048
     Dates: start: 201906, end: 202009
  2. RUXOLITINIB [Suspect]
     Active Substance: RUXOLITINIB
     Dosage: 20 MG, BID (EVERY 12 HOURS)
     Route: 048
     Dates: start: 202010
  3. RUXOLITINIB [Suspect]
     Active Substance: RUXOLITINIB
     Dosage: UNK UNK, Q12H (EVERY 12 HOURS)
     Route: 048
  4. LOSARTAN [Suspect]
     Active Substance: LOSARTAN
     Indication: Hypertension
     Dosage: 50 MG, BID (EVERY 12 HOURS)
     Route: 048
  5. LEVOMEPROMAZINE [Concomitant]
     Active Substance: LEVOMEPROMAZINE
     Indication: Somnolence
     Dosage: 10 DRP, QD (ONCE DAILY)
     Route: 048
  6. AMLODIPINE [Concomitant]
     Active Substance: AMLODIPINE BESYLATE
     Indication: Hypertension
     Dosage: UNK, QD (ONCE DAILY)
     Route: 048

REACTIONS (16)
  - Splenomegaly [Unknown]
  - Varicose ulceration [Unknown]
  - Myelofibrosis [Unknown]
  - Disease recurrence [Unknown]
  - Pain [Unknown]
  - Gastrointestinal disorder [Unknown]
  - Peripheral swelling [Unknown]
  - Gait disturbance [Unknown]
  - Crying [Unknown]
  - General physical health deterioration [Unknown]
  - Skin disorder [Unknown]
  - Asthenia [Unknown]
  - Illness [Unknown]
  - Dysstasia [Unknown]
  - Spleen disorder [Unknown]
  - Off label use [Unknown]
